FAERS Safety Report 24114803 (Version 1)
Quarter: 2024Q3

REPORT INFORMATION
  Report Type: Spontaneous
  Country: CN (occurrence: CN)
  Receive Date: 20240721
  Receipt Date: 20240721
  Transmission Date: 20241017
  Serious: Yes (Other)
  Sender: BAXTER
  Company Number: None

PATIENT
  Age: 72 Year
  Sex: Male
  Weight: 72 kg

DRUGS (13)
  1. CYCLOPHOSPHAMIDE [Suspect]
     Active Substance: CYCLOPHOSPHAMIDE
     Indication: Diffuse large B-cell lymphoma
     Dosage: 1.26 G, ONE TIME IN ONE DAY, DILUTED WITH 100 ML OF 0.9% SODIUM CHLORIDE
     Route: 041
     Dates: start: 20240506, end: 20240506
  2. CYCLOPHOSPHAMIDE [Suspect]
     Active Substance: CYCLOPHOSPHAMIDE
     Indication: B-cell lymphoma
  3. RITUXIMAB [Suspect]
     Active Substance: RITUXIMAB
     Indication: Diffuse large B-cell lymphoma
     Dosage: 100 MG, ONE TIME IN ONE DAY, DILUTED WITH 250 ML OF 0.9% SODIUM CHLORIDE
     Route: 041
     Dates: start: 20240506, end: 20240506
  4. RITUXIMAB [Suspect]
     Active Substance: RITUXIMAB
     Indication: B-cell lymphoma
     Dosage: 500 MG, ONE TIME IN ONE DAY, DILUTED WITH 500 ML OF 0.9% SODIUM CHLORIDE
     Route: 041
     Dates: start: 20240506, end: 20240506
  5. DOXORUBICIN HYDROCHLORIDE [Suspect]
     Active Substance: DOXORUBICIN HYDROCHLORIDE
     Indication: Diffuse large B-cell lymphoma
     Dosage: 40 MG, ONE TIME IN ONE DAY, DILUTED WITH 250 ML OF 5% GLUCOSE
     Route: 041
     Dates: start: 20240506, end: 20240506
  6. DOXORUBICIN HYDROCHLORIDE [Suspect]
     Active Substance: DOXORUBICIN HYDROCHLORIDE
     Indication: B-cell lymphoma
  7. VINCRISTINE SULFATE [Suspect]
     Active Substance: VINCRISTINE SULFATE
     Indication: Diffuse large B-cell lymphoma
     Dosage: 2 MG, ONE TIME IN ONE DAY, DILUTED WITH 50 ML OF 0.9% SODIUM CHLORIDE, ROUTE: MICROPUMP INTRAVENOUS
     Route: 050
     Dates: start: 20240506, end: 20240506
  8. VINCRISTINE SULFATE [Suspect]
     Active Substance: VINCRISTINE SULFATE
     Indication: B-cell lymphoma
  9. SODIUM CHLORIDE [Suspect]
     Active Substance: SODIUM CHLORIDE
     Indication: Medication dilution
     Dosage: 0.9% 100 ML, ONE TIME IN ONE DAY, USED TO DILUTE 1.26 G OF CYCLOPHOSPHAMIDE
     Route: 041
     Dates: start: 20240506, end: 20240506
  10. SODIUM CHLORIDE [Suspect]
     Active Substance: SODIUM CHLORIDE
     Dosage: 0.9% 250 ML, ONE TIME IN ONE DAY, USED TO DILUTE 100 MG OF RITUXIMAB
     Route: 041
     Dates: start: 20240506, end: 20240506
  11. SODIUM CHLORIDE [Suspect]
     Active Substance: SODIUM CHLORIDE
     Dosage: 0.9% 50 ML, ONE TIME IN ONE DAY, USED TO DILUTE 2 MG OF VINCRISTINE SULFATE, ROUTE: MICROPUMP INTRAV
     Route: 050
     Dates: start: 20240506, end: 20240506
  12. SODIUM CHLORIDE [Suspect]
     Active Substance: SODIUM CHLORIDE
     Dosage: 0.9% 500 ML, ONE TIME IN ONE DAY, USED TO DILUTE 500 MG OF RITUXIMAB
     Route: 041
     Dates: start: 20240506, end: 20240506
  13. DEXTROSE [Suspect]
     Active Substance: DEXTROSE\DEXTROSE MONOHYDRATE
     Indication: Medication dilution
     Dosage: 5% 250 ML, ONE TIME IN ONE DAY, USED TO DILUTE 40 MG OF DOXORUBICIN LIPOSOME
     Route: 041
     Dates: start: 20240506, end: 20240506

REACTIONS (9)
  - Leukoplakia oral [Recovering/Resolving]
  - Neutrophil count decreased [Recovering/Resolving]
  - White blood cell count decreased [Recovering/Resolving]
  - Neuropathy peripheral [Unknown]
  - Peripheral nerve palsy [Recovering/Resolving]
  - Hypoaesthesia [Unknown]
  - Palmar-plantar erythrodysaesthesia syndrome [Recovering/Resolving]
  - Erythema [Unknown]
  - Swelling [Unknown]

NARRATIVE: CASE EVENT DATE: 20240521
